FAERS Safety Report 16645139 (Version 1)
Quarter: 2019Q3

REPORT INFORMATION
  Report Type: Spontaneous
  Country: FR (occurrence: FR)
  Receive Date: 20190729
  Receipt Date: 20190729
  Transmission Date: 20191004
  Serious: Yes (Hospitalization)
  Sender: FDA-Public Use
  Company Number: FR-009507513-1907FRA014031

PATIENT
  Age: 62 Year
  Sex: Female
  Weight: 57 kg

DRUGS (3)
  1. CARBIMAZOLE [Suspect]
     Active Substance: CARBIMAZOLE
     Indication: HYPERTHYROIDISM
     Dosage: 40 MILLIGRAM
     Route: 048
     Dates: start: 20190322, end: 20190511
  2. SOLUPRED [Concomitant]
  3. KEYTRUDA [Suspect]
     Active Substance: PEMBROLIZUMAB
     Indication: SQUAMOUS CELL CARCINOMA
     Dosage: 200 MG; FORMULATION: POWDER FOR SOLUTION TO DILUTE FOR INFUSION
     Route: 042
     Dates: start: 20190211, end: 20190418

REACTIONS (1)
  - Hepatitis cholestatic [Recovered/Resolved]

NARRATIVE: CASE EVENT DATE: 20190510
